FAERS Safety Report 24416137 (Version 1)
Quarter: 2024Q4

REPORT INFORMATION
  Report Type: Spontaneous
  Country: US (occurrence: None)
  Receive Date: 20241008
  Receipt Date: 20241008
  Transmission Date: 20250114
  Serious: No
  Sender: Public
  Company Number: None

PATIENT
  Age: 74 Year
  Sex: Male

DRUGS (1)
  1. EMPAGLIFLOZIN [Suspect]
     Active Substance: EMPAGLIFLOZIN
     Dates: end: 20240517

REACTIONS (3)
  - Asthenia [None]
  - Malaise [None]
  - Electrolyte imbalance [None]

NARRATIVE: CASE EVENT DATE: 20240517
